FAERS Safety Report 16878985 (Version 1)
Quarter: 2019Q4

REPORT INFORMATION
  Report Type: Report from Study
  Country: FR (occurrence: FR)
  Receive Date: 20191002
  Receipt Date: 20191002
  Transmission Date: 20200122
  Serious: Yes (Other)
  Sender: FDA-Public Use
  Company Number: PHHY2019FR227381

PATIENT
  Age: 39 Year
  Sex: Male
  Weight: 72.7 kg

DRUGS (4)
  1. ADOPORT [Suspect]
     Active Substance: TACROLIMUS
     Indication: RENAL TRANSPLANT
     Dosage: 9 MG, UNK
     Route: 048
     Dates: start: 20190614, end: 20190802
  2. ADOPORT [Suspect]
     Active Substance: TACROLIMUS
     Dosage: 6 MG, UNK
     Route: 048
     Dates: start: 20190614, end: 20190802
  3. ADOPORT [Suspect]
     Active Substance: TACROLIMUS
     Dosage: 10 MG, UNK
     Route: 048
     Dates: start: 20190614, end: 20190802
  4. ADOPORT [Suspect]
     Active Substance: TACROLIMUS
     Dosage: 11 MG, UNK
     Route: 048
     Dates: start: 20190614, end: 20190802

REACTIONS (4)
  - Diabetes mellitus [Recovered/Resolved with Sequelae]
  - Diarrhoea [Recovered/Resolved]
  - Hypertension [Recovered/Resolved with Sequelae]
  - Anaemia postoperative [Recovered/Resolved]

NARRATIVE: CASE EVENT DATE: 20190615
